FAERS Safety Report 25682522 (Version 1)
Quarter: 2025Q3

REPORT INFORMATION
  Report Type: Spontaneous
  Country: EU (occurrence: EU)
  Receive Date: 20250814
  Receipt Date: 20250814
  Transmission Date: 20251021
  Serious: Yes (Hospitalization)
  Sender: TEVA
  Company Number: None

PATIENT
  Age: 55 Year
  Sex: Male
  Weight: 90 kg

DRUGS (3)
  1. QUETIAPINE [Suspect]
     Active Substance: QUETIAPINE
     Indication: Product used for unknown indication
     Route: 048
     Dates: start: 20210314, end: 20210314
  2. ALCOHOL [Suspect]
     Active Substance: ALCOHOL
     Indication: Product used for unknown indication
     Route: 048
     Dates: start: 20210314, end: 20210314
  3. TRAMADOL [Suspect]
     Active Substance: TRAMADOL
     Indication: Product used for unknown indication
     Route: 048
     Dates: start: 20210314, end: 20210314

REACTIONS (3)
  - Nausea [Recovering/Resolving]
  - Suicide attempt [Recovering/Resolving]
  - Somnolence [Recovering/Resolving]
